FAERS Safety Report 7659755-5 (Version None)
Quarter: 2011Q3

REPORT INFORMATION
  Report Type: 
  Country: None (occurrence: None)
  Receive Date: 20110805
  Receipt Date: 20110729
  Transmission Date: 20111222
  Serious: Yes (Disabling, Other)
  Sender: FDA-Public Use
  Company Number: PHHY2011GB68137

PATIENT
  Age: 71 Year
  Sex: Male
  Weight: 75 kg

DRUGS (9)
  1. FUROSEMIDE [Concomitant]
     Indication: DIURETIC THERAPY
     Dosage: 40 MG, QD
     Route: 048
  2. RAMIPRIL [Concomitant]
     Indication: HYPERTENSION
     Dosage: 10 MG, QD
     Route: 048
  3. BISOPROLOL FUMARATE [Concomitant]
     Indication: MYOCARDIAL ISCHAEMIA
     Dosage: 5 MG, QD
  4. ASPIRIN [Concomitant]
     Indication: MYOCARDIAL ISCHAEMIA
     Dosage: 75 MG, UNK
     Route: 048
  5. GABAPENTIN [Concomitant]
     Indication: NEURALGIA
     Dosage: 300 MG, TID
     Route: 048
  6. LOSARTAN POTASSIUM [Concomitant]
     Indication: HYPERTENSION
     Dosage: 100 MG, QD
     Route: 048
  7. TRAMADOL HCL [Suspect]
     Indication: PAIN
     Dosage: 100 MG, QD
     Route: 048
     Dates: start: 20110707, end: 20110710
  8. SIMVASTATIN [Concomitant]
     Indication: BLOOD CHOLESTEROL INCREASED
     Dosage: 40 MG, QD
     Route: 048
  9. SOLPADOL [Concomitant]
     Indication: PAIN
     Dosage: 2 DF, TID
     Route: 048

REACTIONS (6)
  - PSYCHOTIC DISORDER [None]
  - RASH GENERALISED [None]
  - MOUTH ULCERATION [None]
  - EMOTIONAL DISTRESS [None]
  - MALAISE [None]
  - SKIN LESION [None]
